FAERS Safety Report 19412206 (Version 2)
Quarter: 2021Q3

REPORT INFORMATION
  Report Type: Spontaneous
  Country: GB (occurrence: GB)
  Receive Date: 20210614
  Receipt Date: 20210705
  Transmission Date: 20211014
  Serious: Yes (Other)
  Sender: FDA-Public Use
  Company Number: GB-OCTA-HAPL02621GB

PATIENT
  Age: 36 Year
  Sex: Male
  Weight: 73 kg

DRUGS (1)
  1. ASTRAZENECA COVID?19 VACCINE [Suspect]
     Active Substance: AZD-1222
     Indication: PRODUCT USED FOR UNKNOWN INDICATION
     Dosage: DOSE 1
     Dates: start: 20210331

REACTIONS (2)
  - Abdominal pain upper [Recovering/Resolving]
  - Blood immunoglobulin A increased [Unknown]

NARRATIVE: CASE EVENT DATE: 20210405
